FAERS Safety Report 6439883-2 (Version None)
Quarter: 2009Q4

REPORT INFORMATION
  Report Type: 
  Country: None (occurrence: None)
  Receive Date: 20091113
  Receipt Date: 20091103
  Transmission Date: 20100525
  Serious: Yes (Death, Life-Threatening, Other)
  Sender: FDA-Public Use
  Company Number: ES-PFIZER INC-2009165095

PATIENT
  Age: 45 Year
  Sex: Male
  Weight: 79 kg

DRUGS (9)
  1. VORICONAZOLE [Suspect]
     Indication: ASPERGILLOSIS
     Dosage: 400 MG, 2X/DAY
     Route: 042
     Dates: start: 20090119, end: 20090119
  2. MERONEM [Concomitant]
     Dosage: 1 G, 3X/DAY
     Route: 042
     Dates: start: 20090105, end: 20090120
  3. MERONEM [Concomitant]
     Dosage: 1 G, 2X/DAY
     Route: 042
     Dates: start: 20090121, end: 20090124
  4. TEICOPLANIN [Concomitant]
     Dosage: 400 MG, 1X/DAY
     Route: 042
     Dates: start: 20090113, end: 20090120
  5. ZOVIRAX [Concomitant]
     Dosage: 800 MG, 2X/DAY
     Route: 048
     Dates: start: 20081226, end: 20090120
  6. METAMIZOLE MAGNESIUM [Concomitant]
     Dosage: 1 AMPOULE EVERY 24 HOURS
     Route: 042
     Dates: start: 20090105, end: 20090120
  7. LORAZEPAM [Concomitant]
     Dosage: 1 MG, 1X/DAY
     Route: 048
     Dates: start: 20090106, end: 20090120
  8. OMEPRAZOLE [Concomitant]
     Dosage: 20 MG, 1X/DAY
     Route: 048
     Dates: start: 20081226, end: 20090124
  9. SEPTRIN FORTE [Concomitant]

REACTIONS (3)
  - HEPATITIS [None]
  - METABOLIC ACIDOSIS [None]
  - RENAL IMPAIRMENT [None]
